FAERS Safety Report 12810143 (Version 2)
Quarter: 2016Q4

REPORT INFORMATION
  Report Type: Spontaneous
  Country: US (occurrence: US)
  Receive Date: 20161005
  Receipt Date: 20161019
  Transmission Date: 20170207
  Serious: Yes (Other)
  Sender: FDA-Public Use
  Company Number: US-PFIZER INC-2016462268

PATIENT
  Age: 75 Year
  Sex: Female
  Weight: 75.75 kg

DRUGS (6)
  1. LISINOPRIL. [Concomitant]
     Active Substance: LISINOPRIL
     Indication: BLOOD PRESSURE ABNORMAL
  2. SUTENT [Suspect]
     Active Substance: SUNITINIB MALATE
     Indication: NEOPLASM MALIGNANT
     Dosage: 50 MG, CYCLIC (ONE TABLET EVERY MORNING, TAKE IT FOR 21 DAYS AND STOP IT FOR 8 OR 7 DAYS)
     Route: 048
  3. SUTENT [Suspect]
     Active Substance: SUNITINIB MALATE
     Indication: PANCREATIC CARCINOMA
     Dosage: 50 MG, 1X/DAY
     Route: 048
     Dates: start: 201609
  4. AMLODIPINE BESILATE [Concomitant]
     Active Substance: AMLODIPINE BESYLATE
     Indication: BLOOD PRESSURE ABNORMAL
  5. AMLODIPINE BESILATE [Concomitant]
     Active Substance: AMLODIPINE BESYLATE
     Indication: HYPERTENSION
     Dosage: 10 MG, 1X/DAY
     Route: 048
  6. LISINOPRIL. [Concomitant]
     Active Substance: LISINOPRIL
     Indication: HYPERTENSION
     Dosage: 20 MG, 1X/DAY
     Route: 048

REACTIONS (18)
  - Retching [Recovered/Resolved]
  - Nausea [Recovered/Resolved]
  - Ageusia [Not Recovered/Not Resolved]
  - Malaise [Recovered/Resolved]
  - Cow^s milk intolerance [Unknown]
  - Depression [Unknown]
  - Kidney infection [Unknown]
  - Eye discharge [Unknown]
  - Dysgeusia [Unknown]
  - Feeling abnormal [Unknown]
  - Diarrhoea [Recovered/Resolved]
  - Pain in jaw [Unknown]
  - Weight decreased [Unknown]
  - Quality of life decreased [Unknown]
  - Eye pain [Unknown]
  - Pain [Not Recovered/Not Resolved]
  - Mastication disorder [Unknown]
  - Decreased appetite [Unknown]

NARRATIVE: CASE EVENT DATE: 201609
